FAERS Safety Report 5537989-3 (Version None)
Quarter: 2007Q4

REPORT INFORMATION
  Report Type: 
  Country: None (occurrence: None)
  Receive Date: 20071207
  Receipt Date: 20071127
  Transmission Date: 20080405
  Serious: Yes (Other)
  Sender: FDA-Public Use
  Company Number: US-PFIZER INC-2007100422

PATIENT
  Sex: Female

DRUGS (2)
  1. LYRICA [Suspect]
     Indication: TOOTHACHE
  2. HYALURONIC ACID [Suspect]

REACTIONS (4)
  - EXTRUSION OF DEVICE [None]
  - IMPLANT SITE MASS [None]
  - IMPLANT SITE SWELLING [None]
  - THROAT TIGHTNESS [None]
